FAERS Safety Report 5503629-2 (Version None)
Quarter: 2007Q4

REPORT INFORMATION
  Report Type: 
  Country: None (occurrence: None)
  Receive Date: 20071029
  Receipt Date: 20071011
  Transmission Date: 20080405
  Serious: Yes (Hospitalization)
  Sender: FDA-Public Use
  Company Number: MEDI-0006102

PATIENT
  Age: 2 Month
  Sex: Female

DRUGS (9)
  1. SYNAGIS [Suspect]
     Indication: ANTIVIRAL PROPHYLAXIS
     Dosage: SEE IMAGE, INTRAMUSCULAR
     Route: 030
     Dates: start: 20061102, end: 20061130
  2. SYNAGIS [Suspect]
     Indication: ANTIVIRAL PROPHYLAXIS
     Dosage: SEE IMAGE, INTRAMUSCULAR
     Route: 030
     Dates: start: 20061102
  3. SYNAGIS [Suspect]
     Indication: ANTIVIRAL PROPHYLAXIS
     Dosage: SEE IMAGE, INTRAMUSCULAR
     Route: 030
     Dates: start: 20061227
  4. SYNAGIS [Suspect]
     Indication: ANTIVIRAL PROPHYLAXIS
     Dosage: SEE IMAGE, INTRAMUSCULAR
     Route: 030
     Dates: start: 20070124
  5. SYNAGIS [Suspect]
     Indication: ANTIVIRAL PROPHYLAXIS
     Dosage: SEE IMAGE, INTRAMUSCULAR
     Route: 030
     Dates: start: 20070227
  6. SYNAGIS [Suspect]
     Indication: ANTIVIRAL PROPHYLAXIS
     Dosage: SEE IMAGE, INTRAMUSCULAR
     Route: 030
     Dates: start: 20070327
  7. FUROSEMIDE [Concomitant]
  8. CEFAPENE PIVOXIL HYDROCHLORIDE HYDRATE (CEFCAPENE PIVOXIL HYDROCHLORID [Concomitant]
  9. FERRIC PYROPHOSPHATE (FERRIC PYROPHOSPHATE) [Concomitant]

REACTIONS (4)
  - BRONCHITIS [None]
  - CONJUNCTIVITIS [None]
  - FUNGAL SKIN INFECTION [None]
  - RESPIRATORY SYNCYTIAL VIRUS INFECTION [None]
